FAERS Safety Report 18577434 (Version 2)
Quarter: 2020Q4

REPORT INFORMATION
  Report Type: Report from Study
  Country: US (occurrence: US)
  Receive Date: 20201203
  Receipt Date: 20201207
  Transmission Date: 20210114
  Serious: Yes (Hospitalization)
  Sender: FDA-Public Use
  Company Number: US-GILEAD-2020-0506634

PATIENT
  Sex: Female

DRUGS (5)
  1. PANTOPRAZOLE [Concomitant]
     Active Substance: PANTOPRAZOLE
     Dosage: 40MG, ORAL, ONCE DAILY
     Dates: start: 202010
  2. DIVALPROEX [Concomitant]
     Active Substance: DIVALPROEX SODIUM
     Dosage: 125MG, ORAL, FOUR CAPSULES EVERY 12HRS
     Dates: start: 202010
  3. ITRACONAZOLE. [Concomitant]
     Active Substance: ITRACONAZOLE
     Dosage: 100MG, ORAL, TWO CAPSULES EVERY 12HRS
     Dates: start: 202010
  4. METOPROLOL. [Concomitant]
     Active Substance: METOPROLOL
     Dosage: 50MG, ORAL, THREE TABLETS ONCE DAILY
     Dates: start: 202010
  5. BICTEGRAVIR W/EMTRICITABINE/TENOFOVIR ALAFENAMIDE [Suspect]
     Active Substance: BICTEGRAVIR\EMTRICITABINE\TENOFOVIR ALAFENAMIDE
     Indication: HIV INFECTION
     Dosage: 275 MG, QD
     Route: 048
     Dates: start: 2019

REACTIONS (3)
  - Bacterial infection [Unknown]
  - Intentional dose omission [Not Recovered/Not Resolved]
  - Mental disorder [Unknown]
